FAERS Safety Report 9291464 (Version 1)
Quarter: 2013Q2

REPORT INFORMATION
  Report Type: Spontaneous
  Country: US (occurrence: US)
  Receive Date: 20130515
  Receipt Date: 20130515
  Transmission Date: 20140414
  Serious: Yes (Hospitalization)
  Sender: FDA-Public Use
  Company Number: US-GLAXOSMITHKLINE-A0779978A

PATIENT
  Age: 82 Year
  Sex: Female

DRUGS (1)
  1. AVANDIA [Suspect]
     Indication: DIABETES MELLITUS
     Dosage: 4MG PER DAY
     Route: 048
     Dates: start: 20020228, end: 20070202

REACTIONS (7)
  - Acute myocardial infarction [Recovering/Resolving]
  - Cardiac failure congestive [Unknown]
  - Convulsion [Unknown]
  - Depression [Unknown]
  - Anxiety [Unknown]
  - Acute coronary syndrome [Unknown]
  - Ischaemic cardiomyopathy [Unknown]
